FAERS Safety Report 7241735-5 (Version None)
Quarter: 2011Q1

REPORT INFORMATION
  Report Type: 
  Country: None (occurrence: None)
  Receive Date: 20110114
  Receipt Date: 20110105
  Transmission Date: 20110831
  Serious: Yes (Life-Threatening, Hospitalization, Other)
  Sender: FDA-Public Use
  Company Number: 2011S1000004

PATIENT
  Age: 59 Year
  Sex: Female
  Weight: 73 kg

DRUGS (4)
  1. LIVALO [Suspect]
     Indication: BLOOD CHOLESTEROL INCREASED
     Dosage: 4 MG;1X;PO
     Route: 048
     Dates: start: 20101126, end: 20101126
  2. LIVALO [Suspect]
     Indication: LOW DENSITY LIPOPROTEIN INCREASED
     Dosage: 4 MG;1X;PO
     Route: 048
     Dates: start: 20101126, end: 20101126
  3. LIVALO [Suspect]
     Indication: BLOOD CHOLESTEROL INCREASED
     Dosage: 4 MG;1X;PO
     Route: 048
     Dates: start: 20101128, end: 20101128
  4. LIVALO [Suspect]
     Indication: LOW DENSITY LIPOPROTEIN INCREASED
     Dosage: 4 MG;1X;PO
     Route: 048
     Dates: start: 20101128, end: 20101128

REACTIONS (8)
  - HEADACHE [None]
  - BLOOD PRESSURE INCREASED [None]
  - ELECTROCARDIOGRAM ABNORMAL [None]
  - DIZZINESS [None]
  - INAPPROPRIATE SCHEDULE OF DRUG ADMINISTRATION [None]
  - CHEST PAIN [None]
  - PALPITATIONS [None]
  - CARDIOVASCULAR DISORDER [None]
